FAERS Safety Report 7238718-8 (Version None)
Quarter: 2011Q1

REPORT INFORMATION
  Report Type: 
  Country: None (occurrence: None)
  Receive Date: 20110121
  Receipt Date: 20110118
  Transmission Date: 20110831
  Serious: Yes (Death, Hospitalization)
  Sender: FDA-Public Use
  Company Number: BR-ACTELION-A-CH2011-43937

PATIENT
  Age: 5 Year
  Sex: Female
  Weight: 18 kg

DRUGS (2)
  1. ANTIEPILEPTICS [Concomitant]
  2. ZAVESCA [Suspect]
     Indication: TAY-SACHS DISEASE
     Dosage: 200 MG, BID
     Route: 048
     Dates: start: 20100901

REACTIONS (4)
  - LUNG DISORDER [None]
  - WEIGHT DECREASED [None]
  - PNEUMONIA [None]
  - RESPIRATORY FAILURE [None]
